FAERS Safety Report 12536533 (Version 5)
Quarter: 2019Q2

REPORT INFORMATION
  Report Type: Spontaneous
  Country: US (occurrence: US)
  Receive Date: 20160707
  Receipt Date: 20190628
  Transmission Date: 20190711
  Serious: No
  Sender: FDA-Public Use
  Company Number: US-PFIZER INC-2014121963

PATIENT
  Age: 61 Year
  Sex: Male
  Weight: 102 kg

DRUGS (44)
  1. ASPIRIN. [Concomitant]
     Active Substance: ASPIRIN
     Dosage: 81 MG, DAILY
     Route: 048
  2. HYDROCODONE W/ACETAMINOPHEN [Concomitant]
     Active Substance: ACETAMINOPHEN\HYDROCODONE BITARTRATE
     Dosage: 2 DF, AS NEEDED (HYDROCODONE: 10MG;ACETAMINOPHEN:325MG, THREE TIMES A DAY)
     Route: 048
  3. HYDROCODONE W/ACETAMINOPHEN [Concomitant]
     Active Substance: ACETAMINOPHEN\HYDROCODONE BITARTRATE
     Dosage: UNK, AS NEEDED (DROCODONE: 10MG;ACETAMINOPHEN:325MG) (1-2 TABLET AS NEEDED FOR PAIN ORALLY THREE TI)
  4. FENTANYL. [Concomitant]
     Active Substance: FENTANYL
     Dosage: 1 DF, UNK (75 MCG/HR 1 PATCH TO SKIN TRANS DERMAL EVERY 3 DAYS)
     Route: 062
  5. FENTANYL. [Concomitant]
     Active Substance: FENTANYL
     Dosage: 1 DF, UNK (100 MCG/HR 1 PATCH TO SKIN FAR PAIN TRANSDERMAL EVERY 3 DAYS)
     Route: 062
  6. FLONASE [Concomitant]
     Active Substance: FLUTICASONE PROPIONATE
     Dosage: 1 DF, 1X/DAY (50 MCG/ACT )
     Route: 045
  7. LYRICA [Suspect]
     Active Substance: PREGABALIN
     Dosage: 100 MG, 3X/DAY (50 MG 2 CAPSULE ORALLY THREE TIMES A DAY)
     Route: 048
  8. BUPROPION HCL [Concomitant]
     Active Substance: BUPROPION HYDROCHLORIDE
     Indication: AFFECTIVE DISORDER
     Dosage: 150 MG, ONCE A DAY (1 TABLET IN THE MORNING)
     Route: 048
  9. GLIMEPIRIDE. [Concomitant]
     Active Substance: GLIMEPIRIDE
     Indication: DIABETES MELLITUS
     Dosage: 4 MG, TWICE A DAY (TAKE ONE TABLET BY MOUTH)
     Route: 048
  10. PRAVASTATIN SODIUM. [Concomitant]
     Active Substance: PRAVASTATIN SODIUM
     Indication: BLOOD CHOLESTEROL ABNORMAL
     Dosage: 40 MG (ONE TABLET), EVERY DAY IN THE EVENING
     Route: 048
  11. VITAMIN D3 [Concomitant]
     Active Substance: CHOLECALCIFEROL
     Dosage: 5000 IU, WEEKLY
     Route: 048
  12. GEMFIBROZIL. [Concomitant]
     Active Substance: GEMFIBROZIL
     Indication: BLOOD TRIGLYCERIDES ABNORMAL
     Dosage: 600  TAKE ONE AND ONE HALF TABLET TWICE DAILY
     Route: 048
  13. DOCUSATE SODIUM. [Concomitant]
     Active Substance: DOCUSATE SODIUM
     Indication: CONSTIPATION
     Dosage: UNK UNK, AS NEEDED (100 MG 1-2 CAPSULE AS NEEDED ORALLY ONCE A DAY FOR CONSTIPATION SO DAY(S)
     Route: 048
  14. LYRICA [Suspect]
     Active Substance: PREGABALIN
     Indication: NEUROPATHY PERIPHERAL
     Dosage: 100 MG, 3X/DAY
     Route: 048
     Dates: start: 20121003
  15. PRAVASTATIN SODIUM. [Concomitant]
     Active Substance: PRAVASTATIN SODIUM
     Dosage: 20 MG, ONCE A DAY
     Route: 048
  16. METFORMIN HCL [Concomitant]
     Active Substance: METFORMIN HYDROCHLORIDE
     Dosage: UNK, 1X/DAY (0.5 TABLET WITH EVENING MEAL ORALLY ONCE A DAY)
     Route: 048
  17. LANTUS [Concomitant]
     Active Substance: INSULIN GLARGINE
     Dosage: 100 UNITS/ML SOLUTION 80 UNITS ONCE A DAY ADJUST MAY ADJUST UP TO 100 U PER DAY
     Route: 058
  18. VITAMIN C [Concomitant]
     Active Substance: ASCORBIC ACID
     Dosage: 500 MG, ONCE A DAY
     Route: 048
  19. VITAMIN B COMPLEX [Concomitant]
     Active Substance: CYANOCOBALAMIN\DEXPANTHENOL\NIACINAMIDE\PYRIDOXINE HYDROCHLORIDE\RIBOFLAVIN 5^-PHOSPHATE SODIUM\THIAMINE HYDROCHLORIDE\VITAMIN B COMPLEX
     Dosage: UNK, AS DIRECTED
     Route: 048
  20. AMLODIPINE BESYLATE. [Concomitant]
     Active Substance: AMLODIPINE BESYLATE
     Indication: BLOOD PRESSURE MEASUREMENT
     Dosage: 1 DF, DAILY (TAKE ONE TABLET BY MOUTH EVERY DAY )
     Route: 048
  21. PRAVACHOL [Concomitant]
     Active Substance: PRAVASTATIN SODIUM
     Dosage: 20 MG, ONCE A DAY (BEDTIME )
  22. VIAGRA [Concomitant]
     Active Substance: SILDENAFIL CITRATE
     Dosage: 100 MG (1 TABLET), AS NEEDED ONCE A DAY
     Route: 048
     Dates: start: 20121003
  23. ZYRTEC [Concomitant]
     Active Substance: CETIRIZINE HYDROCHLORIDE
     Indication: HYPERSENSITIVITY
     Dosage: 10 MG, AS NEEDED
  24. METOPROLOL TARTRATE. [Concomitant]
     Active Substance: METOPROLOL TARTRATE
     Indication: BLOOD PRESSURE ABNORMAL
     Dosage: 25 MG, TWICE A DAY
     Route: 048
  25. LISINOPRIL AND HYDROCHLOROTHIAZIDE [Concomitant]
     Active Substance: HYDROCHLOROTHIAZIDE\LISINOPRIL
     Indication: BLOOD PRESSURE ABNORMAL
     Dosage: 20 HYDROCHLOROTHIAZIDE-12.5 LISINOPRIL TABLET (1 DF), TWICE A DAY
     Route: 048
  26. GARCINIA CAMBOGIA-CHROMIUM [Concomitant]
     Dosage: 500 MG-200 MCG, AS DIRECTED
     Route: 048
  27. POTASSIUM GLUCONATE [Concomitant]
     Active Substance: POTASSIUM GLUCONATE
     Dosage: 595 MG, AS DIRECTED
     Route: 048
  28. GEMFIBROZIL. [Concomitant]
     Active Substance: GEMFIBROZIL
     Dosage: 600 MG, 2X/DAY (600 MG 1 TABLET ORALLY TWICE A DAY)
     Route: 048
  29. COMPAZINE [Concomitant]
     Active Substance: PROCHLORPERAZINE MALEATE
     Indication: NAUSEA
     Dosage: 5 MG, AS NEEDED (1 TABLET AS NEEDED FOR NAUSEA ORALLY THREE TIMES A DAY)
     Route: 048
  30. FLUTICASONE PROPIONATE. [Concomitant]
     Active Substance: FLUTICASONE PROPIONATE
     Indication: HYPERSENSITIVITY
     Dosage: 1 DF, AS NEEDED ((50 MCG/ACT 1 SPRAY IN EACH NOSTRIL AS NEEDED ALLERGIES NASALLY ONCE A DAY)
     Route: 045
  31. TIZANIDINE HYDROCHLORIDE. [Concomitant]
     Active Substance: TIZANIDINE HYDROCHLORIDE
     Dosage: 4 MG (ONE TABLET), EVERY 8 HOURS AS NEEDED
     Route: 048
  32. METFORMIN HCL [Concomitant]
     Active Substance: METFORMIN HYDROCHLORIDE
     Dosage: 1000 MG, 1X/DAY (1000 MG 1 TABLET WITH EVENING MEAL ORALLY ONCE A DAY)
     Route: 048
  33. TESTOSTERONE CIPIONATE [Concomitant]
     Active Substance: TESTOSTERONE
     Dosage: (200 MG/ML OIL) 0.5 ML, 2X/WEEK
     Route: 030
     Dates: start: 20131031
  34. ANUCORT-HC [Concomitant]
     Active Substance: HYDROCORTISONE ACETATE
     Dosage: 25 MG, 2X/DAY
     Route: 054
     Dates: start: 20130718
  35. MOMETASONE FUROATE. [Concomitant]
     Active Substance: MOMETASONE FUROATE
     Dosage: UNK, 1X/DAY (50 MCG/ACT INSTILL 1 SPRAY INTO EACH NOSTRIL ONCE DAILY)
     Route: 045
  36. TAMSULOSIN HCL [Concomitant]
     Active Substance: TAMSULOSIN HYDROCHLORIDE
     Dosage: 0.4 MG, 1X/DAY
     Route: 048
  37. VALIUM [Concomitant]
     Active Substance: DIAZEPAM
     Dosage: 10 MG, AS NEEDED (TAKE 1 PO 1 HOUR BEFORE TEST)
     Route: 048
     Dates: end: 20140608
  38. CLOPIDOGREL BISULFATE. [Concomitant]
     Active Substance: CLOPIDOGREL BISULFATE
     Dosage: 75 MG, ONCE A DAY
     Route: 048
  39. METFORMIN HCL [Concomitant]
     Active Substance: METFORMIN HYDROCHLORIDE
     Indication: DIABETES MELLITUS
     Dosage: 1000 MG (1 TABLET ), 2X/DAY WITH MEALS
     Route: 048
  40. OMEGA 3 [Concomitant]
     Active Substance: OMEGA-3 FATTY ACIDS
     Dosage: 1000 MG, ONCE A DAY (WITH A MEAL)
     Route: 048
  41. FLUCONAZOLE. [Concomitant]
     Active Substance: FLUCONAZOLE
     Dosage: 100 MG, 1X/DAY
     Route: 048
  42. OMEPRAZOLE. [Concomitant]
     Active Substance: OMEPRAZOLE
     Indication: ABDOMINAL DISCOMFORT
     Dosage: 40 MG, ONCE A DAY
     Route: 048
  43. HYDROCODONE W/ACETAMINOPHEN [Concomitant]
     Active Substance: ACETAMINOPHEN\HYDROCODONE BITARTRATE
     Indication: PAIN
     Dosage: 10-325 MG 2 TABLETS AS NEEDED THREE TIMES A DAY
     Route: 048
  44. FIBERCON [Concomitant]
     Active Substance: CALCIUM POLYCARBOPHIL
     Indication: FUNCTIONAL GASTROINTESTINAL DISORDER
     Dosage: 1250 MG, DAILY (625 MG 2 TABLETS ORALLY DAILY)
     Route: 048

REACTIONS (4)
  - Diabetic neuropathy [Unknown]
  - Nerve injury [Unknown]
  - Withdrawal syndrome [Unknown]
  - Pain [Unknown]
